FAERS Safety Report 23987325 (Version 2)
Quarter: 2024Q4

REPORT INFORMATION
  Report Type: Spontaneous
  Country: GB (occurrence: GB)
  Receive Date: 20240618
  Receipt Date: 20241015
  Transmission Date: 20250114
  Serious: Yes (Other)
  Sender: NOVARTIS
  Company Number: GB-HALEON-2178496

PATIENT
  Age: 26 Year
  Sex: Male

DRUGS (1)
  1. TERBINAFINE [Suspect]
     Active Substance: TERBINAFINE\TERBINAFINE HYDROCHLORIDE
     Indication: Dermatophytosis
     Dosage: UNK
     Route: 065

REACTIONS (2)
  - Delirium [Unknown]
  - Drug resistance [Unknown]
